FAERS Safety Report 4307239-4 (Version None)
Quarter: 2004Q1

REPORT INFORMATION
  Report Type: 
  Country: None (occurrence: None)
  Receive Date: 20040226
  Receipt Date: 20040211
  Transmission Date: 20041129
  Serious: Yes (Hospitalization)
  Sender: FDA-Public Use
  Company Number: US065348

PATIENT
  Age: 74 Year
  Sex: Female

DRUGS (2)
  1. KINERET [Suspect]
     Indication: RHEUMATOID ARTHRITIS
     Dosage: 100 MG, 1 IN  1 DAYS, SC
     Route: 058
     Dates: start: 20020102, end: 20030907
  2. METHOTREXATE [Suspect]

REACTIONS (16)
  - BACK DISORDER [None]
  - BACK PAIN [None]
  - BLOOD CULTURE POSITIVE [None]
  - CARDIAC DISORDER [None]
  - CARDIAC VALVE VEGETATION [None]
  - CULTURE URINE POSITIVE [None]
  - DEEP VEIN THROMBOSIS [None]
  - ECHOCARDIOGRAM ABNORMAL [None]
  - HEPATIC CIRRHOSIS [None]
  - HEPATIC FAILURE [None]
  - LYMPHOMA [None]
  - OSTEOPOROSIS [None]
  - PLASMACYTOMA [None]
  - SEPSIS [None]
  - STAPHYLOCOCCAL INFECTION [None]
  - URINARY TRACT INFECTION [None]
